FAERS Safety Report 16372738 (Version 1)
Quarter: 2019Q2

REPORT INFORMATION
  Report Type: Spontaneous
  Country: US (occurrence: US)
  Receive Date: 20190530
  Receipt Date: 20190530
  Transmission Date: 20190711
  Serious: Yes (Other)
  Sender: FDA-Public Use
  Company Number: US-PFIZER INC-2019225656

PATIENT
  Sex: Female

DRUGS (2)
  1. DIAZEPAM. [Suspect]
     Active Substance: DIAZEPAM
     Indication: EATING DISORDER
  2. DIAZEPAM. [Suspect]
     Active Substance: DIAZEPAM
     Indication: WEIGHT DECREASED
     Dosage: UNK

REACTIONS (3)
  - Off label use [Unknown]
  - Drug dependence [Unknown]
  - Product use in unapproved indication [Unknown]
